FAERS Safety Report 5188141-5 (Version None)
Quarter: 2006Q4

REPORT INFORMATION
  Report Type: 
  Country: None (occurrence: None)
  Receive Date: 20061221
  Receipt Date: 20061107
  Transmission Date: 20070319
  Serious: Yes (Hospitalization)
  Sender: FDA-Public Use
  Company Number: 2006CG01807

PATIENT
  Age: 11026 Day
  Sex: Female
  Weight: 66 kg

DRUGS (2)
  1. NEXIUM [Suspect]
     Indication: OESOPHAGITIS
     Route: 048
     Dates: start: 20061023, end: 20061024
  2. MOTILYO [Concomitant]
     Dates: start: 20061023, end: 20061023

REACTIONS (1)
  - DELIRIUM [None]
